FAERS Safety Report 12999826 (Version 1)
Quarter: 2016Q4

REPORT INFORMATION
  Report Type: Not Available
  Country: BR (occurrence: BR)
  Receive Date: 20161205
  Receipt Date: 20161205
  Transmission Date: 20170207
  Serious: Yes (Death, Hospitalization)
  Sender: FDA-Public Use
  Company Number: BR-AKORN-44904

PATIENT
  Sex: Female

DRUGS (1)
  1. COSOPT [Suspect]
     Active Substance: DORZOLAMIDE HYDROCHLORIDE\TIMOLOL MALEATE

REACTIONS (11)
  - Fatigue [Unknown]
  - Osteoporosis [Unknown]
  - Arrhythmia [Unknown]
  - Respiratory failure [Not Recovered/Not Resolved]
  - Diet refusal [Unknown]
  - Intervertebral disc protrusion [Unknown]
  - Death [Unknown]
  - Exostosis [Unknown]
  - Diabetes mellitus [Unknown]
  - Hypertension [Unknown]
  - Bone disorder [Unknown]
